FAERS Safety Report 14247754 (Version 6)
Quarter: 2018Q1

REPORT INFORMATION
  Report Type: Spontaneous
  Country: US (occurrence: US)
  Receive Date: 20171204
  Receipt Date: 20180126
  Transmission Date: 20180508
  Serious: No
  Sender: FDA-Public Use
  Company Number: US-BAYER-2017-113692

PATIENT
  Age: 38 Year
  Sex: Female
  Weight: 127.8 kg

DRUGS (7)
  1. ILOPROST. [Suspect]
     Active Substance: ILOPROST
     Indication: PULMONARY ARTERIAL HYPERTENSION
     Dosage: 5 MCG, 6 TO 9 TIMES PER DAY
     Route: 055
  2. ILOPROST. [Suspect]
     Active Substance: ILOPROST
     Indication: PULMONARY ARTERIAL HYPERTENSION
     Dosage: 5 MCG, 6 TO 9 TIMES PER DAY
     Route: 055
  3. ADEMPAS [Suspect]
     Active Substance: RIOCIGUAT
     Indication: PRODUCT USED FOR UNKNOWN INDICATION
     Dosage: 2 MG, TID
     Route: 048
     Dates: start: 201708
  4. OPSUMIT [Suspect]
     Active Substance: MACITENTAN
     Indication: PULMONARY ARTERIAL HYPERTENSION
     Dosage: 10 MG, QD
     Route: 048
  5. ADEMPAS [Suspect]
     Active Substance: RIOCIGUAT
     Indication: PRODUCT USED FOR UNKNOWN INDICATION
     Dosage: 1.5 MG, TID
     Route: 048
     Dates: start: 201708
  6. REMODULIN [Suspect]
     Active Substance: TREPROSTINIL
     Indication: PRODUCT USED FOR UNKNOWN INDICATION
     Dosage: UNK
     Route: 065
  7. SILDENAFIL CITRATE. [Concomitant]
     Active Substance: SILDENAFIL CITRATE
     Dosage: UNK

REACTIONS (19)
  - Dyspnoea [None]
  - Dizziness [Recovered/Resolved]
  - Arthralgia [None]
  - Fatigue [None]
  - Dizziness postural [None]
  - Diarrhoea [None]
  - Heart rate decreased [None]
  - Influenza like illness [None]
  - Orthostatic hypotension [None]
  - Nausea [None]
  - Retching [None]
  - Cough [None]
  - Abdominal distension [None]
  - Pain in extremity [None]
  - Pain [None]
  - Malaise [None]
  - Hypotension [Recovered/Resolved]
  - Weight increased [Recovered/Resolved]
  - Dyspnoea exertional [None]

NARRATIVE: CASE EVENT DATE: 20170326
